FAERS Safety Report 11044380 (Version 2)
Quarter: 2015Q2

REPORT INFORMATION
  Report Type: Spontaneous
  Country: US (occurrence: US)
  Receive Date: 20150417
  Receipt Date: 20150526
  Transmission Date: 20150821
  Serious: No
  Sender: FDA-Public Use
  Company Number: US-PFIZER INC-2015125892

PATIENT
  Age: 66 Year
  Sex: Female
  Weight: 113.38 kg

DRUGS (1)
  1. GABAPENTIN. [Suspect]
     Active Substance: GABAPENTIN
     Indication: DIABETIC NEUROPATHY
     Dosage: 300 MG, 2X/DAY
     Dates: start: 20150123, end: 2015

REACTIONS (5)
  - Balance disorder [Unknown]
  - Gait disturbance [Unknown]
  - Dizziness [Unknown]
  - Vision blurred [Unknown]
  - Visual acuity reduced [Unknown]
